FAERS Safety Report 12653667 (Version 2)
Quarter: 2016Q3

REPORT INFORMATION
  Report Type: Report from Study
  Country: CA (occurrence: CA)
  Receive Date: 20160816
  Receipt Date: 20160817
  Transmission Date: 20161109
  Serious: Yes (Other)
  Sender: FDA-Public Use
  Company Number: CA-ROCHE-1643890

PATIENT
  Age: 46 Year
  Sex: Female
  Weight: 50 kg

DRUGS (5)
  1. AVASTIN [Suspect]
     Active Substance: BEVACIZUMAB
     Dosage: 12/APR/2016, SHE HAD BEVACIZUMAB INFUSION
     Route: 042
     Dates: start: 20160216
  2. AVASTIN [Suspect]
     Active Substance: BEVACIZUMAB
     Indication: BRAIN NEOPLASM MALIGNANT
     Route: 042
     Dates: start: 20150917
  3. AVASTIN [Suspect]
     Active Substance: BEVACIZUMAB
     Route: 042
     Dates: start: 20160714
  4. TECTA [Concomitant]
     Active Substance: PANTOPRAZOLE MAGNESIUM
  5. DEXAMETHASONE. [Concomitant]
     Active Substance: DEXAMETHASONE

REACTIONS (19)
  - Pneumonia [Unknown]
  - Eastern Cooperative Oncology Group performance status worsened [Unknown]
  - Abasia [Not Recovered/Not Resolved]
  - Weight decreased [Not Recovered/Not Resolved]
  - Body temperature increased [Unknown]
  - Asthenia [Unknown]
  - Bedridden [Not Recovered/Not Resolved]
  - Oropharyngeal pain [Unknown]
  - Heart rate increased [Unknown]
  - Infusion related reaction [Recovered/Resolved]
  - Pruritus [Recovered/Resolved]
  - Cough [Unknown]
  - Heart rate decreased [Unknown]
  - Muscular weakness [Not Recovered/Not Resolved]
  - Oxygen saturation decreased [Unknown]
  - Cognitive disorder [Unknown]
  - Mobility decreased [Unknown]
  - Rhinorrhoea [Unknown]
  - Somnolence [Unknown]

NARRATIVE: CASE EVENT DATE: 20150917
